FAERS Safety Report 8314224-4 (Version None)
Quarter: 2012Q2

REPORT INFORMATION
  Report Type: 
  Country: None (occurrence: None)
  Receive Date: 20120426
  Receipt Date: 20120423
  Transmission Date: 20120825
  Serious: No
  Sender: FDA-Public Use
  Company Number: US-B.I. PHARMACEUTICALS,INC./RIDGEFIELD-2012-BP-09224BP

PATIENT
  Sex: Male

DRUGS (3)
  1. PROAIR HFA [Concomitant]
  2. SPIRIVA [Suspect]
     Indication: CHRONIC OBSTRUCTIVE PULMONARY DISEASE
     Dosage: 18 MCG
     Route: 055
     Dates: start: 20120411
  3. FLOVENT [Concomitant]

REACTIONS (2)
  - ABDOMINAL DISCOMFORT [None]
  - TREMOR [None]
